FAERS Safety Report 8451247-9 (Version None)
Quarter: 2012Q2

REPORT INFORMATION
  Report Type: 
  Country: None (occurrence: None)
  Receive Date: 20120620
  Receipt Date: 20120319
  Transmission Date: 20120825
  Serious: No
  Sender: FDA-Public Use
  Company Number: US-VERTEX PHARMACEUTICALS INC.-AE-2012-001600

PATIENT
  Sex: Male
  Weight: 72.64 kg

DRUGS (4)
  1. INCIVEK [Suspect]
     Indication: HEPATITIS C
     Route: 048
     Dates: start: 20110924, end: 20111203
  2. RIBAVIRIN [Concomitant]
     Indication: HEPATITIS C
     Route: 048
     Dates: start: 20110924, end: 20120303
  3. PEGASYS [Concomitant]
     Indication: HEPATITIS C
     Route: 058
     Dates: start: 20110924, end: 20120303
  4. DIAZEPAM [Concomitant]
     Indication: ANXIETY

REACTIONS (6)
  - DEPRESSED MOOD [None]
  - PRURITUS [None]
  - DRY MOUTH [None]
  - RASH [None]
  - THIRST [None]
  - ALOPECIA [None]
